FAERS Safety Report 17118934 (Version 1)
Quarter: 2019Q4

REPORT INFORMATION
  Report Type: Spontaneous
  Country: US (occurrence: US)
  Receive Date: 20191206
  Receipt Date: 20191206
  Transmission Date: 20200122
  Serious: No
  Sender: FDA-Public Use
  Company Number: US-UCBSA-2017031796

PATIENT
  Age: 20 Year
  Sex: Male
  Weight: 136 kg

DRUGS (1)
  1. VIMPAT [Suspect]
     Active Substance: LACOSAMIDE
     Indication: SEIZURE
     Dosage: 300MG IN THE MORNING + 450MG EVENING

REACTIONS (2)
  - Overdose [Unknown]
  - Off label use [Unknown]
